FAERS Safety Report 23680786 (Version 1)
Quarter: 2024Q1

REPORT INFORMATION
  Report Type: Spontaneous
  Country: US (occurrence: US)
  Receive Date: 20240328
  Receipt Date: 20240328
  Transmission Date: 20240410
  Serious: No
  Sender: FDA-Public Use
  Company Number: US-Bion-012759

PATIENT
  Sex: Female

DRUGS (1)
  1. IBUPROFEN [Suspect]
     Active Substance: IBUPROFEN
     Indication: Oral pain
     Dosage: ONE
     Dates: start: 20240319

REACTIONS (2)
  - Glossodynia [Unknown]
  - Oral pain [Unknown]
